FAERS Safety Report 7809815 (Version 6)
Quarter: 2012Q4

REPORT INFORMATION
  Report Type: 
  Country: US (occurrence: US)
  Receive Date: 20110211
  Receipt Date: 20121015
  Transmission Date: 20130627
  Serious: Yes (Other)
  Sender: FDA-Public Use
  Company Number: US-ASTRAZENECA-2010SE56707

PATIENT
  Age: 53 Year
  Sex: Female
  Weight: 68 kg

DRUGS (2)
  1. NEXIUM [Suspect]
     Indication: GASTROOESOPHAGEAL REFLUX DISEASE
     Route: 048
  2. SEROQUEL [Suspect]
     Indication: SLEEP DISORDER
     Route: 048
     Dates: start: 2010

REACTIONS (10)
  - Lung neoplasm malignant [Unknown]
  - Ocular neoplasm [Unknown]
  - Throat cancer [Unknown]
  - Nervousness [Not Recovered/Not Resolved]
  - Medical device pain [Unknown]
  - Chronic obstructive pulmonary disease [Unknown]
  - Weight increased [Unknown]
  - Malaise [Unknown]
  - Insomnia [Unknown]
  - Drug dose omission [Unknown]
